FAERS Safety Report 5434285-X (Version None)
Quarter: 2007Q3

REPORT INFORMATION
  Report Type: 
  Country: None (occurrence: None)
  Receive Date: 20070828
  Receipt Date: 20070828
  Transmission Date: 20080115
  Serious: No
  Sender: FDA-Public Use
  Company Number: None

PATIENT
  Sex: Male
  Weight: 83.0083 kg

DRUGS (1)
  1. PROPRANOLOL [Suspect]
     Indication: VENTRICULAR EXTRASYSTOLES
     Dosage: 80 MG DAILY PO
     Route: 048
     Dates: start: 20070305, end: 20070607

REACTIONS (3)
  - DISEASE RECURRENCE [None]
  - PALPITATIONS [None]
  - THERAPEUTIC RESPONSE UNEXPECTED WITH DRUG SUBSTITUTION [None]
